FAERS Safety Report 5809541-3 (Version None)
Quarter: 2008Q3

REPORT INFORMATION
  Report Type: 
  Country: None (occurrence: None)
  Receive Date: 20080708
  Receipt Date: 20071030
  Transmission Date: 20090109
  Serious: Yes (Disabling)
  Sender: FDA-Public Use
  Company Number: M-05-043

PATIENT
  Age: 80 Year
  Sex: Male

DRUGS (4)
  1. AMIODARONE HCL [Suspect]
     Indication: ARRHYTHMIA
     Dosage: 200 MG, PO
     Route: 048
     Dates: end: 20040212
  2. AMIODARONE HCL [Suspect]
     Indication: ARRHYTHMIA
     Dosage: 200 MG, BID, PO
     Route: 048
     Dates: start: 20030101
  3. AMIODARONE HCL [Suspect]
     Indication: ARRHYTHMIA
     Dosage: 200 MG, TID, PO
     Route: 048
     Dates: start: 20031125, end: 20030101
  4. COUMADIN [Concomitant]

REACTIONS (3)
  - OPTIC NEUROPATHY [None]
  - TREMOR [None]
  - VISUAL ACUITY REDUCED [None]
